FAERS Safety Report 5976759-9 (Version None)
Quarter: 2008Q4

REPORT INFORMATION
  Report Type: 
  Country: None (occurrence: None)
  Receive Date: 20081201
  Receipt Date: 20081201
  Transmission Date: 20090506
  Serious: Yes (Hospitalization)
  Sender: FDA-Public Use
  Company Number: None

PATIENT
  Age: 4 Week
  Sex: Female
  Weight: 4.8 kg

DRUGS (1)
  1. AZITHROMYCIN [Suspect]
     Indication: PERTUSSIS
     Dosage: 38MG Q24H IV
     Route: 042
     Dates: start: 20081104, end: 20081109

REACTIONS (1)
  - PYLORIC STENOSIS [None]
